FAERS Safety Report 18756814 (Version 1)
Quarter: 2021Q1

REPORT INFORMATION
  Report Type: Spontaneous
  Country: US (occurrence: US)
  Receive Date: 20210118
  Receipt Date: 20210118
  Transmission Date: 20210419
  Serious: Yes (Life-Threatening)
  Sender: FDA-Public Use
  Company Number: None

PATIENT
  Age: 33 Year
  Sex: Female
  Weight: 58.95 kg

DRUGS (4)
  1. PLEXUS MULTIVITAMIN [Concomitant]
  2. NP THYROID [Suspect]
     Active Substance: LEVOTHYROXINE\LIOTHYRONINE
     Indication: AUTOIMMUNE THYROIDITIS
     Dosage: ?
     Route: 048
     Dates: start: 20200301, end: 20210113
  3. PROBIOTIC [Concomitant]
     Active Substance: PROBIOTICS NOS
  4. COLLAGEN POWDER [Concomitant]

REACTIONS (4)
  - Recalled product administered [None]
  - Palpitations [None]
  - Heart rate increased [None]
  - Heart rate irregular [None]

NARRATIVE: CASE EVENT DATE: 20210110
